FAERS Safety Report 6759617-1 (Version None)
Quarter: 2010Q2

REPORT INFORMATION
  Report Type: 
  Country: None (occurrence: None)
  Receive Date: 20100608
  Receipt Date: 20100528
  Transmission Date: 20101027
  Serious: Yes (Other)
  Sender: FDA-Public Use
  Company Number: CH-BIOGENIDEC-2010BI016557

PATIENT
  Age: 57 Year
  Sex: Female

DRUGS (3)
  1. TYSABRI [Suspect]
     Indication: MULTIPLE SCLEROSIS
     Route: 042
     Dates: start: 20090925
  2. REMERON [Concomitant]
     Indication: DEPRESSED MOOD
  3. LITHIUM [Concomitant]
     Indication: DEPRESSED MOOD

REACTIONS (2)
  - BASAL CELL CARCINOMA [None]
  - SEBORRHOEIC KERATOSIS [None]
